FAERS Safety Report 24575540 (Version 3)
Quarter: 2024Q4

REPORT INFORMATION
  Report Type: Report from Study
  Country: KR (occurrence: KR)
  Receive Date: 20241104
  Receipt Date: 20241202
  Transmission Date: 20250114
  Serious: Yes (Other)
  Sender: NOVARTIS
  Company Number: KR-002147023-NVSC2024KR211454

PATIENT
  Age: 78 Year
  Sex: Female

DRUGS (8)
  1. BEOVU [Suspect]
     Active Substance: BROLUCIZUMAB-DBLL
     Indication: Neovascular age-related macular degeneration
     Dosage: 6 MG (LEFT EYE)
     Route: 031
     Dates: start: 20231012, end: 20231012
  2. BEOVU [Suspect]
     Active Substance: BROLUCIZUMAB-DBLL
     Dosage: 6 MG
     Route: 031
     Dates: start: 20231110, end: 20231110
  3. VIGAMOX [Concomitant]
     Active Substance: MOXIFLOXACIN HYDROCHLORIDE
     Indication: Evidence based treatment
     Dosage: 1 DRP, Q2H
     Route: 047
     Dates: start: 20231012, end: 20231014
  4. VIGAMOX [Concomitant]
     Active Substance: MOXIFLOXACIN HYDROCHLORIDE
     Dosage: 1 DRP, Q2H
     Route: 047
     Dates: start: 20231110, end: 20231112
  5. EYLEA [Concomitant]
     Active Substance: AFLIBERCEPT
     Indication: Age-related macular degeneration
     Dosage: UNK
     Route: 065
     Dates: start: 20231212, end: 20231212
  6. PARACAINE [Concomitant]
     Active Substance: PROPARACAINE HYDROCHLORIDE
     Indication: Investigation
     Dosage: UNK
     Route: 065
     Dates: start: 20231110
  7. Tropherin [Concomitant]
     Indication: Investigation
     Dosage: UNK
     Route: 065
     Dates: start: 20231027
  8. PREDNILONE [Concomitant]
     Indication: Inflammation
     Dosage: UNK
     Route: 065
     Dates: start: 20231110, end: 20231212

REACTIONS (3)
  - Eye inflammation [Recovered/Resolved]
  - Anterior chamber inflammation [Unknown]
  - Vitreous floaters [Unknown]

NARRATIVE: CASE EVENT DATE: 20231101
